FAERS Safety Report 5203768-X (Version None)
Quarter: 2007Q1

REPORT INFORMATION
  Report Type: 
  Country: None (occurrence: None)
  Receive Date: 20070105
  Receipt Date: 20061229
  Transmission Date: 20070707
  Serious: Yes (Other)
  Sender: FDA-Public Use
  Company Number: 234421

PATIENT
  Age: 5 Year
  Sex: Male
  Weight: 13.6 kg

DRUGS (1)
  1. NUTROPIN AQ [Suspect]
     Indication: GROWTH RETARDATION
     Dosage: 0.6 MG, QHS, SUBCUTANEOUS
     Route: 058
     Dates: start: 20060623

REACTIONS (1)
  - MUSCLE TWITCHING [None]
